FAERS Safety Report 20998687 (Version 3)
Quarter: 2022Q3

REPORT INFORMATION
  Report Type: Report from Study
  Country: CA (occurrence: CA)
  Receive Date: 20220623
  Receipt Date: 20220921
  Transmission Date: 20221027
  Serious: Yes (Hospitalization, Other)
  Sender: FDA-Public Use
  Company Number: CA-NOVARTISPH-NVSC2022CA139416

PATIENT
  Age: 67 Year
  Sex: Male
  Weight: 86.2 kg

DRUGS (3)
  1. HYRIMOZ [Suspect]
     Active Substance: ADALIMUMAB-ADAZ
     Indication: Crohn^s disease
     Dosage: 40 MG
     Route: 058
     Dates: start: 20220325
  2. HYRIMOZ [Suspect]
     Active Substance: ADALIMUMAB-ADAZ
     Dosage: UNK, QW
     Route: 065
  3. HYRIMOZ [Suspect]
     Active Substance: ADALIMUMAB-ADAZ
     Dosage: 40 MG, QW
     Route: 058
     Dates: start: 20220328

REACTIONS (17)
  - Pancreatic carcinoma [Unknown]
  - Abdominal pain [Unknown]
  - Angina pectoris [Unknown]
  - Weight decreased [Unknown]
  - Insomnia [Unknown]
  - Eating disorder [Unknown]
  - Asthenia [Unknown]
  - Flatulence [Unknown]
  - Gait disturbance [Unknown]
  - Fatigue [Unknown]
  - Decreased appetite [Unknown]
  - Hypotension [Unknown]
  - Pain [Unknown]
  - Muscle spasms [Unknown]
  - Malaise [Unknown]
  - Nausea [Unknown]
  - Vomiting [Unknown]

NARRATIVE: CASE EVENT DATE: 20220617
